FAERS Safety Report 16968518 (Version 1)
Quarter: 2019Q4

REPORT INFORMATION
  Report Type: Spontaneous
  Country: CA (occurrence: CA)
  Receive Date: 20191029
  Receipt Date: 20191029
  Transmission Date: 20200122
  Serious: Yes (Other)
  Sender: FDA-Public Use
  Company Number: CA-AUROBINDO-AUR-APL-2019-068544

PATIENT
  Age: 66 Year
  Sex: Male
  Weight: 88 kg

DRUGS (1)
  1. VALSARTAN. [Suspect]
     Active Substance: VALSARTAN
     Indication: HYPERTENSION
     Dosage: 80.0 MILLIGRAM, ONCE A DAY
     Route: 065

REACTIONS (4)
  - Drug ineffective [Recovered/Resolved]
  - Dizziness [Recovered/Resolved]
  - Blood pressure inadequately controlled [Recovered/Resolved]
  - Drug intolerance [Recovered/Resolved]
